FAERS Safety Report 14768927 (Version 1)
Quarter: 2018Q2

REPORT INFORMATION
  Report Type: Spontaneous
  Country: US (occurrence: US)
  Receive Date: 20180417
  Receipt Date: 20180417
  Transmission Date: 20180711
  Serious: No
  Sender: FDA-Public Use
  Company Number: US-DSJP-DSU-2018-111825

PATIENT
  Age: 46 Year
  Sex: Male

DRUGS (1)
  1. MORPHABOND ER [Suspect]
     Active Substance: MORPHINE SULFATE
     Indication: NECK PAIN
     Dosage: 100 MG, ONCE EVERY 12HR
     Route: 048
     Dates: start: 20180316, end: 201803

REACTIONS (4)
  - Pain [Unknown]
  - Abdominal pain upper [Unknown]
  - Arthralgia [Unknown]
  - Feeling hot [Unknown]

NARRATIVE: CASE EVENT DATE: 201803
